FAERS Safety Report 8334484-3 (Version None)
Quarter: 2012Q2

REPORT INFORMATION
  Report Type: 
  Country: None (occurrence: None)
  Receive Date: 20120503
  Receipt Date: 20110721
  Transmission Date: 20120825
  Serious: No
  Sender: FDA-Public Use
  Company Number: US-TEVA-2011001441

PATIENT
  Age: 31 Year
  Sex: Male

DRUGS (1)
  1. NUVIGIL [Suspect]
     Dosage: 100 MILLIGRAM;
     Route: 048
     Dates: start: 20101201, end: 20110301

REACTIONS (1)
  - SKIN DISCOLOURATION [None]
